FAERS Safety Report 6746720-5 (Version None)
Quarter: 2010Q2

REPORT INFORMATION
  Report Type: 
  Country: None (occurrence: None)
  Receive Date: 20100528
  Receipt Date: 20090515
  Transmission Date: 20101027
  Serious: No
  Sender: FDA-Public Use
  Company Number: A0784597A

PATIENT
  Age: 86 Year
  Sex: Female

DRUGS (3)
  1. VENTOLIN [Suspect]
     Indication: CHRONIC OBSTRUCTIVE PULMONARY DISEASE
     Dosage: 2PUFF AS REQUIRED
     Route: 055
     Dates: start: 20070101
  2. FORADIL [Concomitant]
  3. CLONIDINE [Concomitant]

REACTIONS (1)
  - DYSPNOEA [None]
